FAERS Safety Report 14979635 (Version 1)
Quarter: 2018Q2

REPORT INFORMATION
  Report Type: Spontaneous
  Country: US (occurrence: US)
  Receive Date: 20180606
  Receipt Date: 20180606
  Transmission Date: 20180711
  Serious: No
  Sender: FDA-Public Use
  Company Number: US-MYLANLABS-2018M1034001

PATIENT
  Sex: Female
  Weight: 49 kg

DRUGS (4)
  1. AMITRIPTYLINE HYDROCHLORIDE TABLETS, USP [Suspect]
     Active Substance: AMITRIPTYLINE HYDROCHLORIDE
     Dosage: 10 MG, UNK
     Route: 048
  2. AMITRIPTYLINE HYDROCHLORIDE TABLETS, USP [Suspect]
     Active Substance: AMITRIPTYLINE HYDROCHLORIDE
     Indication: GASTROINTESTINAL DISORDER
     Dosage: 5 MG, UNK
     Route: 048
     Dates: start: 20171017
  3. XANAX [Concomitant]
     Active Substance: ALPRAZOLAM
     Indication: ANXIETY
     Dosage: UNK
  4. ELAVIL [Concomitant]
     Active Substance: AMITRIPTYLINE HYDROCHLORIDE
     Dosage: UNK

REACTIONS (7)
  - Product use in unapproved indication [Not Recovered/Not Resolved]
  - Underdose [Not Recovered/Not Resolved]
  - Product physical issue [Not Recovered/Not Resolved]
  - Wrong technique in product usage process [Unknown]
  - Drug hypersensitivity [Not Recovered/Not Resolved]
  - Abnormal dreams [Recovered/Resolved]
  - Abdominal discomfort [Unknown]

NARRATIVE: CASE EVENT DATE: 20171017
